FAERS Safety Report 5263553-X (Version None)
Quarter: 2007Q1

REPORT INFORMATION
  Report Type: 
  Country: None (occurrence: None)
  Receive Date: 20070313
  Receipt Date: 20070226
  Transmission Date: 20070707
  Serious: Yes (Hospitalization)
  Sender: FDA-Public Use
  Company Number: US-AMGEN-US212737

PATIENT
  Sex: Female

DRUGS (3)
  1. ENBREL [Suspect]
     Indication: ARTHRITIS
     Route: 058
     Dates: start: 20061007, end: 20070125
  2. METHOTREXATE [Concomitant]
     Route: 058
     Dates: start: 20060601
  3. PLAQUENIL [Concomitant]
     Dates: start: 20050601

REACTIONS (2)
  - BURSITIS [None]
  - NEURITIS [None]
